FAERS Safety Report 6640665-7 (Version None)
Quarter: 2010Q1

REPORT INFORMATION
  Report Type: 
  Country: None (occurrence: None)
  Receive Date: 20100302
  Receipt Date: 20091111
  Transmission Date: 20100710
  Serious: No
  Sender: FDA-Public Use
  Company Number: 2009298109

PATIENT
  Age: 54 Year
  Sex: Female

DRUGS (3)
  1. TOVIAZ [Suspect]
     Indication: HYPERTONIC BLADDER
     Dosage: 4MG, 1X/DAY
     Dates: start: 20091001
  2. LIPITOR [Concomitant]
  3. LORAZEPAM [Concomitant]

REACTIONS (3)
  - DRY MOUTH [None]
  - FOOD AVERSION [None]
  - GLOSSODYNIA [None]
